FAERS Safety Report 4441790-1 (Version None)
Quarter: 2004Q3

REPORT INFORMATION
  Report Type: 
  Country: None (occurrence: None)
  Receive Date: 20040907
  Receipt Date: 20040709
  Transmission Date: 20050211
  Serious: Yes (Other)
  Sender: FDA-Public Use
  Company Number: FRWYE893809JUL04

PATIENT
  Sex: Male
  Weight: 56 kg

DRUGS (3)
  1. ENBREL [Suspect]
     Indication: PSORIATIC ARTHROPATHY
     Route: 058
     Dates: start: 20040327
  2. VIOXX [Concomitant]
     Route: 048
     Dates: start: 20031101
  3. DOLIPRANE [Concomitant]
     Route: 048
     Dates: start: 20030601

REACTIONS (2)
  - ALANINE AMINOTRANSFERASE INCREASED [None]
  - ASPARTATE AMINOTRANSFERASE INCREASED [None]
